FAERS Safety Report 5919260-0 (Version None)
Quarter: 2008Q4

REPORT INFORMATION
  Report Type: 
  Country: None (occurrence: None)
  Receive Date: 20081014
  Receipt Date: 20081014
  Transmission Date: 20090506
  Serious: Yes (Other)
  Sender: FDA-Public Use
  Company Number: None

PATIENT
  Age: 56 Year
  Sex: Male
  Weight: 94 kg

DRUGS (1)
  1. ORLISTAT 120 MGS. ROCHE INTERNATIONAL [Suspect]
     Dosage: 240 MGS. PO
     Route: 048
     Dates: start: 20040109, end: 20040918

REACTIONS (2)
  - FAECAL INCONTINENCE [None]
  - RECTAL DISCHARGE [None]
